FAERS Safety Report 11924646 (Version 2)
Quarter: 2016Q1

REPORT INFORMATION
  Report Type: Spontaneous
  Country: US (occurrence: US)
  Receive Date: 20160118
  Receipt Date: 20160211
  Transmission Date: 20160526
  Serious: No
  Sender: FDA-Public Use
  Company Number: US-GLAXOSMITHKLINE-US2016GSK002067

PATIENT
  Sex: Female

DRUGS (1)
  1. PROPAFENONE HYDROCHLORIDE SR [Suspect]
     Active Substance: PROPAFENONE HYDROCHLORIDE
     Indication: ATRIAL FIBRILLATION
     Dosage: UNK
     Route: 065

REACTIONS (4)
  - Malaise [Unknown]
  - Product substitution issue [Unknown]
  - Vomiting [Unknown]
  - Nausea [Unknown]
